FAERS Safety Report 25366757 (Version 1)
Quarter: 2025Q2

REPORT INFORMATION
  Report Type: Report from Study
  Country: US (occurrence: US)
  Receive Date: 20250528
  Receipt Date: 20250528
  Transmission Date: 20250716
  Serious: Yes (Other)
  Sender: ACADIA PHARMACEUTICALS
  Company Number: US-ACADIA PHARMACEUTICALS INC.-ACA-2025-PIM-006159

PATIENT
  Age: 74 Year
  Sex: Male

DRUGS (40)
  1. NUPLAZID [Suspect]
     Active Substance: PIMAVANSERIN TARTRATE
     Indication: Parkinson^s disease
     Dosage: 34 MILLIGRAM, QD
     Route: 048
     Dates: start: 20250422
  2. FLONASE ALLERGY RELIEF [Concomitant]
     Active Substance: FLUTICASONE PROPIONATE
  3. VITAMINS [Concomitant]
     Active Substance: VITAMINS
  4. TYLENOL [Concomitant]
     Active Substance: ACETAMINOPHEN
  5. AMLODIPINE [Concomitant]
     Active Substance: AMLODIPINE BESYLATE
  6. AREXVY [Concomitant]
     Active Substance: RECOMBINANT RESPIRATORY SYNCYTIAL VIRUS PRE-FUSION F PROTEIN ANTIGEN
  7. ARIPIPRAZOLE [Concomitant]
     Active Substance: ARIPIPRAZOLE
  8. ASPIRIN [Concomitant]
     Active Substance: ASPIRIN
  9. ATORVASTATIN [Concomitant]
     Active Substance: ATORVASTATIN
  10. AUSTEDO [Concomitant]
     Active Substance: DEUTETRABENAZINE
  11. CIPROFLOXACIN [Concomitant]
     Active Substance: CIPROFLOXACIN
  12. CLINDAMYCIN [Concomitant]
     Active Substance: CLINDAMYCIN
  13. CLOPIDOGREL [Concomitant]
     Active Substance: CLOPIDOGREL BISULFATE
  14. CYCLOBENZAPRINE [Concomitant]
     Active Substance: CYCLOBENZAPRINE
  15. DICLOFENAC [Concomitant]
     Active Substance: DICLOFENAC
  16. FAMOTIDINE [Concomitant]
     Active Substance: FAMOTIDINE
  17. FLUOROURACIL [Concomitant]
     Active Substance: FLUOROURACIL
  18. GABAPENTIN [Concomitant]
     Active Substance: GABAPENTIN
  19. HYDRALAZINE [Concomitant]
     Active Substance: HYDRALAZINE HYDROCHLORIDE
  20. HYDROCODONE BITARTRATE AND ACETAMINOPHEN [Concomitant]
     Active Substance: ACETAMINOPHEN\HYDROCODONE BITARTRATE
  21. ISOSORBIDE MONONITRATE [Concomitant]
     Active Substance: ISOSORBIDE MONONITRATE
  22. LIDOCAINE [Concomitant]
     Active Substance: LIDOCAINE
  23. LIDOCAINE\PRILOCAINE [Concomitant]
     Active Substance: LIDOCAINE\PRILOCAINE
  24. LISINOPRIL [Concomitant]
     Active Substance: LISINOPRIL
  25. METOPROLOL SUCCINATE [Concomitant]
     Active Substance: METOPROLOL SUCCINATE
  26. MYRBETRIQ [Concomitant]
     Active Substance: MIRABEGRON
  27. NITROFURANTOIN [Concomitant]
     Active Substance: NITROFURANTOIN
  28. NITROGLYCERIN [Concomitant]
     Active Substance: NITROGLYCERIN
  29. OMEPRAZOLE [Concomitant]
     Active Substance: OMEPRAZOLE
  30. PANTOPRAZOLE [Concomitant]
     Active Substance: PANTOPRAZOLE
  31. QUETIAPINE [Concomitant]
     Active Substance: QUETIAPINE
  32. ROSUVASTATIN [Concomitant]
     Active Substance: ROSUVASTATIN
  33. SERTRALINE [Concomitant]
     Active Substance: SERTRALINE HYDROCHLORIDE
  34. SOLIFENACIN [Concomitant]
     Active Substance: SOLIFENACIN
  35. TAMSULOSIN [Concomitant]
     Active Substance: TAMSULOSIN
  36. TIZANIDINE [Concomitant]
     Active Substance: TIZANIDINE
  37. TOLTERODINE TARTRATE [Concomitant]
     Active Substance: TOLTERODINE TARTRATE
  38. TRAZODONE [Concomitant]
     Active Substance: TRAZODONE HYDROCHLORIDE
  39. TRIAMCINOLONE [Concomitant]
     Active Substance: TRIAMCINOLONE
  40. XDEMVY [Concomitant]
     Active Substance: LOTILANER

REACTIONS (2)
  - Hallucination [Recovered/Resolved]
  - Somnolence [Recovered/Resolved]

NARRATIVE: CASE EVENT DATE: 20250426
